FAERS Safety Report 15673235 (Version 2)
Quarter: 2018Q4

REPORT INFORMATION
  Report Type: Spontaneous
  Country: IE (occurrence: IE)
  Receive Date: 20181129
  Receipt Date: 20181226
  Transmission Date: 20190205
  Serious: Yes (Other)
  Sender: FDA-Public Use
  Company Number: IE-NOVOPROD-596755

PATIENT
  Age: 30 Year
  Sex: Female
  Weight: 88.4 kg

DRUGS (2)
  1. NOVORAPID [Concomitant]
     Active Substance: INSULIN ASPART
     Dosage: UNK
  2. LEVEMIR [Suspect]
     Active Substance: INSULIN DETEMIR
     Indication: TYPE 1 DIABETES MELLITUS
     Dosage: 168 IU, QD (16 UNITS IN AM; 152 UNITS IN PM)
     Route: 065
     Dates: start: 201802

REACTIONS (6)
  - Exposure during pregnancy [Recovered/Resolved]
  - Premature delivery [Recovered/Resolved]
  - Haemorrhage in pregnancy [Unknown]
  - Symphysiolysis [Recovered/Resolved]
  - Nausea [Recovered/Resolved]
  - Nasopharyngitis [Unknown]

NARRATIVE: CASE EVENT DATE: 2018
